FAERS Safety Report 6589838-2 (Version None)
Quarter: 2010Q1

REPORT INFORMATION
  Report Type: 
  Country: None (occurrence: None)
  Receive Date: 20100212
  Receipt Date: 20100128
  Transmission Date: 20100710
  Serious: Yes (Death)
  Sender: FDA-Public Use
  Company Number: AE 2010-012

PATIENT
  Age: 39 Year
  Sex: Male

DRUGS (12)
  1. FAZACLO ODT [Suspect]
     Dosage: 25MG DAILY PO
     Route: 048
     Dates: start: 20090709, end: 20091219
  2. ALLEGRA [Concomitant]
  3. NASONEX [Concomitant]
  4. ADVAIR DISKUS 100/50 [Concomitant]
  5. LISINOPRIL [Concomitant]
  6. MEVACOR [Concomitant]
  7. LOPRESSOR [Concomitant]
  8. PRILOSEC [Concomitant]
  9. METFORMIN HYDROCHLORIDE [Concomitant]
  10. DEPAKOTE [Concomitant]
  11. LUVOX [Concomitant]
  12. VENTOLIN HFA [Concomitant]

REACTIONS (1)
  - DEATH [None]
